FAERS Safety Report 13447344 (Version 1)
Quarter: 2017Q2

REPORT INFORMATION
  Report Type: Spontaneous
  Country: US (occurrence: US)
  Receive Date: 20170416
  Receipt Date: 20170416
  Transmission Date: 20170830
  Serious: Yes (Other)
  Sender: FDA-Public Use
  Company Number: None

PATIENT
  Age: 57 Year
  Sex: Male
  Weight: 90 kg

DRUGS (3)
  1. ALFUZOSIN [Suspect]
     Active Substance: ALFUZOSIN
     Indication: BENIGN PROSTATIC HYPERPLASIA
     Dosage: ?          QUANTITY:1 TABLET(S);?
     Route: 048
     Dates: start: 20170405, end: 20170405
  2. ALFUZOSIN [Suspect]
     Active Substance: ALFUZOSIN
     Indication: BLADDER PAIN
     Dosage: ?          QUANTITY:1 TABLET(S);?
     Route: 048
     Dates: start: 20170405, end: 20170405
  3. NORMAL DAILY VITAMIN [Concomitant]

REACTIONS (2)
  - Fear of disease [None]
  - Heart rate increased [None]

NARRATIVE: CASE EVENT DATE: 20170405
